FAERS Safety Report 4521320-6 (Version None)
Quarter: 2004Q4

REPORT INFORMATION
  Report Type: 
  Country: None (occurrence: None)
  Receive Date: 20041208
  Receipt Date: 20041129
  Transmission Date: 20050328
  Serious: Yes (Other)
  Sender: FDA-Public Use
  Company Number: PHBS2004JP16102

PATIENT
  Age: 13 Year
  Sex: Female

DRUGS (3)
  1. EXCEGRAN [Concomitant]
     Indication: POST-TRAUMATIC EPILEPSY
     Dosage: 150 MG/DAY
     Route: 048
     Dates: start: 20041025
  2. EXCEGRAN [Concomitant]
     Route: 048
     Dates: start: 20041101
  3. TEGRETOL [Suspect]
     Indication: POST-TRAUMATIC EPILEPSY
     Dosage: 400 MG/DAY
     Route: 048
     Dates: start: 20040109

REACTIONS (4)
  - CATARACT [None]
  - CONVULSION [None]
  - DRUG INEFFECTIVE [None]
  - LENS DISORDER [None]
